FAERS Safety Report 4622314-2 (Version None)
Quarter: 2005Q1

REPORT INFORMATION
  Report Type: 
  Country: None (occurrence: None)
  Receive Date: 20050328
  Receipt Date: 20050315
  Transmission Date: 20050727
  Serious: Yes (Hospitalization)
  Sender: FDA-Public Use
  Company Number: 2005031844

PATIENT
  Age: 36 Year
  Sex: Female
  Weight: 60 kg

DRUGS (9)
  1. CELEBREX [Suspect]
     Indication: RHEUMATOID ARTHRITIS
     Dosage: 200 MG (200 MG, 1 IN 1 D) ORAL
     Route: 048
     Dates: start: 20010101, end: 20041217
  2. SERTRALINE HCL [Concomitant]
  3. BROMAZEPAM [Concomitant]
  4. METOCLOPRAMIDE [Concomitant]
  5. TRAMADOL HCL [Concomitant]
  6. TRAMADOL HCL [Concomitant]
  7. DIHYDROERGOTAMINE MESYLATE [Concomitant]
  8. SOLPADEINE (CAFFEINE, CODEINE PHOSPHATE, PARACETAMOL) [Concomitant]
  9. LISINOPRIL [Concomitant]

REACTIONS (3)
  - CARDIAC MURMUR [None]
  - EMBOLISM [None]
  - HAEMORRHAGE [None]
